FAERS Safety Report 13003804 (Version 1)
Quarter: 2016Q4

REPORT INFORMATION
  Report Type: Spontaneous
  Country: US (occurrence: US)
  Receive Date: 20161206
  Receipt Date: 20161206
  Transmission Date: 20170207
  Serious: Yes (Other)
  Sender: FDA-Public Use
  Company Number: US-LUNDBECK-DKLU2023532

PATIENT
  Age: 12 Month
  Sex: Male

DRUGS (9)
  1. LAMOTRIGINE. [Suspect]
     Active Substance: LAMOTRIGINE
     Indication: INFANTILE SPASMS
     Route: 065
  2. VIGABATRIN (FOR ORAL SOLUTION) [Suspect]
     Active Substance: VIGABATRIN
     Indication: INFANTILE SPASMS
     Route: 065
  3. CLOBAZAM [Suspect]
     Active Substance: CLOBAZAM
     Indication: INFANTILE SPASMS
     Route: 065
  4. SOLU-MEDROL [Suspect]
     Active Substance: METHYLPREDNISOLONE SODIUM SUCCINATE
     Indication: INFANTILE SPASMS
     Route: 042
  5. FELBATOL [Suspect]
     Active Substance: FELBAMATE
     Indication: INFANTILE SPASMS
     Route: 065
  6. CLONAZEPAM. [Suspect]
     Active Substance: CLONAZEPAM
     Indication: INFANTILE SPASMS
     Route: 065
  7. VALPROIC ACID. [Suspect]
     Active Substance: VALPROIC ACID
     Indication: INFANTILE SPASMS
     Route: 065
  8. TOPIRAMATE. [Suspect]
     Active Substance: TOPIRAMATE
     Indication: INFANTILE SPASMS
     Route: 065
  9. ZONISAMIDE. [Suspect]
     Active Substance: ZONISAMIDE
     Indication: INFANTILE SPASMS
     Route: 065

REACTIONS (1)
  - Infantile spasms [Unknown]
